FAERS Safety Report 8438848-9 (Version None)
Quarter: 2012Q2

REPORT INFORMATION
  Report Type: 
  Country: None (occurrence: None)
  Receive Date: 20120615
  Receipt Date: 20120606
  Transmission Date: 20120825
  Serious: Yes (Other)
  Sender: FDA-Public Use
  Company Number: BR-US-EMD SERONO, INC.-7139271

PATIENT
  Sex: Female

DRUGS (6)
  1. SERTRALINE HYDROCHLORIDE [Concomitant]
     Indication: PRODUCT USED FOR UNKNOWN INDICATION
  2. REBIF [Suspect]
     Indication: SECONDARY PROGRESSIVE MULTIPLE SCLEROSIS
     Dates: start: 20111003
  3. MANTIDAM (AMANTADINE HYDROCHLORIDE) [Concomitant]
     Indication: PRODUCT USED FOR UNKNOWN INDICATION
  4. IBUPROFEN [Concomitant]
     Indication: PRODUCT USED FOR UNKNOWN INDICATION
  5. SULPAN (BROMAZEPAM, SULPIRIDE) [Concomitant]
     Indication: PRODUCT USED FOR UNKNOWN INDICATION
  6. DYPIRONE (DIPYRONE) [Concomitant]
     Indication: PRODUCT USED FOR UNKNOWN INDICATION

REACTIONS (1)
  - LABYRINTHITIS [None]
